FAERS Safety Report 16215627 (Version 1)
Quarter: 2019Q2

REPORT INFORMATION
  Report Type: Spontaneous
  Country: NL (occurrence: NL)
  Receive Date: 20190419
  Receipt Date: 20190419
  Transmission Date: 20190711
  Serious: Yes (Life-Threatening, Hospitalization, Other)
  Sender: FDA-Public Use
  Company Number: NL-TEVA-2019-NL-1038356

PATIENT
  Age: 38 Year
  Sex: Female

DRUGS (9)
  1. DIANE (CYPROTERONE ACETATE\ETHINYL ESTRADIOL) [Suspect]
     Active Substance: CYPROTERONE ACETATE\ETHINYL ESTRADIOL
     Route: 065
  2. NORTRIPTYLINE [Suspect]
     Active Substance: NORTRIPTYLINE
     Route: 065
  3. CEFALY [Suspect]
     Active Substance: DEVICE
     Route: 065
  4. CANDESARTAN 8 MG [Suspect]
     Active Substance: CANDESARTAN
     Route: 065
  5. PROPRANOLOL [Suspect]
     Active Substance: PROPRANOLOL HYDROCHLORIDE
     Route: 065
  6. TOPIRAMATE. [Suspect]
     Active Substance: TOPIRAMATE
     Route: 065
  7. METOPROLOL. [Suspect]
     Active Substance: METOPROLOL
     Route: 065
  8. VALPROIC ACID 500 MG [Suspect]
     Active Substance: VALPROIC ACID
     Route: 065
  9. AMITRIPTYLINE [Suspect]
     Active Substance: AMITRIPTYLINE
     Route: 065

REACTIONS (4)
  - Psychotic disorder [Unknown]
  - Hypotension [Unknown]
  - Suicidal ideation [Unknown]
  - Drug ineffective [Unknown]
